FAERS Safety Report 24908283 (Version 1)
Quarter: 2025Q1

REPORT INFORMATION
  Report Type: Spontaneous
  Country: JP (occurrence: JP)
  Receive Date: 20250131
  Receipt Date: 20250131
  Transmission Date: 20250408
  Serious: Yes (Hospitalization, Other)
  Sender: NOVARTIS
  Company Number: JP-002147023-NVSJ2025JP000890

PATIENT
  Age: 57 Year
  Sex: Male

DRUGS (9)
  1. ENTRESTO [Suspect]
     Active Substance: SACUBITRIL\VALSARTAN
     Indication: Hypertension
     Dosage: 200 MG, QD AFTER BREAKFAST
     Route: 048
     Dates: start: 20220525, end: 20250104
  2. ADALAT CC [Concomitant]
     Active Substance: NIFEDIPINE
     Indication: Hypertension
     Dosage: 20 MG, ONCE DAILY AFTER BREAKFAST (USED BEFORE 25 MAY 2022)
     Route: 048
  3. ADALAT CC [Concomitant]
     Active Substance: NIFEDIPINE
     Route: 048
     Dates: start: 20241016, end: 20250104
  4. FEBUXOSTAT [Concomitant]
     Active Substance: FEBUXOSTAT
     Indication: Product used for unknown indication
     Dosage: 10 MG, QD AFTER BREAKFAST
     Route: 048
     Dates: start: 20220525
  5. FEBUXOSTAT [Concomitant]
     Active Substance: FEBUXOSTAT
     Route: 048
     Dates: start: 20241016
  6. LANSOPRAZOLE [Concomitant]
     Active Substance: LANSOPRAZOLE
     Indication: Gastrooesophageal reflux disease
     Dosage: 15 MG, QD AFTER BREAKFAST
     Route: 048
     Dates: start: 20220525
  7. LANSOPRAZOLE [Concomitant]
     Active Substance: LANSOPRAZOLE
     Route: 048
     Dates: start: 20241016
  8. LYRICA [Concomitant]
     Active Substance: PREGABALIN
     Indication: Product used for unknown indication
     Route: 048
     Dates: start: 20220525
  9. LYRICA [Concomitant]
     Active Substance: PREGABALIN
     Route: 048
     Dates: start: 20241016

REACTIONS (21)
  - Nephrolithiasis [Recovered/Resolved]
  - Lower gastrointestinal haemorrhage [Recovering/Resolving]
  - Haematochezia [Recovering/Resolving]
  - Hypotension [Recovered/Resolved]
  - Loss of consciousness [Unknown]
  - Fall [Unknown]
  - Blood pressure decreased [Recovering/Resolving]
  - Depressed level of consciousness [Recovering/Resolving]
  - Polyp [Unknown]
  - Hydronephrosis [Unknown]
  - Pyelonephritis [Unknown]
  - Decreased appetite [Recovering/Resolving]
  - Pyrexia [Recovered/Resolved]
  - Tricuspid valve incompetence [Unknown]
  - Pericardial effusion [Unknown]
  - Haemorrhoidal haemorrhage [Unknown]
  - Coronavirus test positive [Unknown]
  - Oropharyngeal pain [Unknown]
  - Cough [Unknown]
  - Diarrhoea [Recovering/Resolving]
  - Sinus tachycardia [Unknown]

NARRATIVE: CASE EVENT DATE: 20240630
